FAERS Safety Report 7433779-5 (Version None)
Quarter: 2011Q2

REPORT INFORMATION
  Report Type: 
  Country: None (occurrence: None)
  Receive Date: 20110425
  Receipt Date: 20110415
  Transmission Date: 20111010
  Serious: Yes (Hospitalization)
  Sender: FDA-Public Use
  Company Number: FR-BIOGENIDEC-2011BI014461

PATIENT
  Age: 31 Year
  Sex: Female
  Weight: 61 kg

DRUGS (7)
  1. BETAMETHASONE [Concomitant]
     Indication: PHARYNGITIS
     Route: 048
     Dates: start: 20110105
  2. CLONAZEPAM [Concomitant]
     Indication: PAIN IN EXTREMITY
     Route: 048
     Dates: start: 20110101
  3. CEFTRIAXONE [Concomitant]
     Indication: SINUSITIS
     Dates: start: 20110105
  4. TYSABRI [Suspect]
     Indication: MULTIPLE SCLEROSIS
     Route: 042
     Dates: start: 20081010, end: 20110107
  5. METHYLPREDNISOLONE [Concomitant]
     Indication: MULTIPLE SCLEROSIS RELAPSE
     Route: 042
     Dates: start: 20110114, end: 20110116
  6. BOTULINUM TOXIN [Concomitant]
     Indication: MUSCLE RELAXANT THERAPY
     Dates: start: 20100901
  7. ALFUZOSINE [Concomitant]
     Route: 048
     Dates: start: 20110107

REACTIONS (1)
  - PSEUDOMEMBRANOUS COLITIS [None]
